FAERS Safety Report 6767766-7 (Version None)
Quarter: 2010Q2

REPORT INFORMATION
  Report Type: 
  Country: None (occurrence: None)
  Receive Date: 20100614
  Receipt Date: 20100601
  Transmission Date: 20101027
  Serious: Yes (Other)
  Sender: FDA-Public Use
  Company Number: PHHY2010US35655

PATIENT
  Sex: Female

DRUGS (8)
  1. EXTAVIA [Suspect]
     Indication: MULTIPLE SCLEROSIS
     Dosage: 0.25 MG, QOD
     Route: 058
     Dates: start: 20100401, end: 20100531
  2. EFFEXOR [Concomitant]
     Dosage: 150 MG, QD
  3. OMEPRAZOLE [Concomitant]
     Dosage: 40 MG, QD
  4. PREDNISONE [Concomitant]
     Dosage: 5 MG, QD
  5. NORCO [Concomitant]
     Dosage: 10/325, UNK
  6. FENTANYL [Concomitant]
     Dosage: 50 MCG, UNK
  7. ADVIL LIQUI-GELS [Concomitant]
     Dosage: 200 MG PRN
  8. DANTRIUM [Concomitant]
     Dosage: 50 MG, QD

REACTIONS (2)
  - FURUNCLE [None]
  - INJECTION SITE RASH [None]
